FAERS Safety Report 19785242 (Version 1)
Quarter: 2021Q3

REPORT INFORMATION
  Report Type: Report from Study
  Country: US (occurrence: US)
  Receive Date: 20210903
  Receipt Date: 20210903
  Transmission Date: 20211014
  Serious: Yes (Other)
  Sender: FDA-Public Use
  Company Number: US-SA-2020SA014611

PATIENT
  Age: 42 Year
  Sex: Female

DRUGS (3)
  1. TERIFLUNOMIDE. [Suspect]
     Active Substance: TERIFLUNOMIDE
     Dosage: 14 MG, QD
     Route: 048
  2. TERIFLUNOMIDE. [Suspect]
     Active Substance: TERIFLUNOMIDE
     Dosage: 14 MG, QD
     Route: 048
     Dates: start: 20200128
  3. TERIFLUNOMIDE. [Suspect]
     Active Substance: TERIFLUNOMIDE
     Indication: MULTIPLE SCLEROSIS
     Dosage: 7 MG, QD
     Route: 048
     Dates: start: 20200107, end: 20200127

REACTIONS (27)
  - Hypoaesthesia [Not Recovered/Not Resolved]
  - Paraesthesia [Not Recovered/Not Resolved]
  - Pruritus [Unknown]
  - Cough [Not Recovered/Not Resolved]
  - Sneezing [Unknown]
  - Rhinorrhoea [Unknown]
  - Multiple sclerosis [Recovered/Resolved]
  - Therapeutic response decreased [Recovered/Resolved]
  - Dry skin [Unknown]
  - Respiratory tract congestion [Unknown]
  - Head injury [Recovered/Resolved]
  - Unevaluable event [Recovered/Resolved]
  - Dysstasia [Recovered/Resolved]
  - Ear infection [Not Recovered/Not Resolved]
  - Facial paralysis [Not Recovered/Not Resolved]
  - Hypoaesthesia [Recovered/Resolved]
  - Fall [Recovered/Resolved]
  - Stress [Not Recovered/Not Resolved]
  - Pain [Not Recovered/Not Resolved]
  - Multiple sclerosis [Recovered/Resolved]
  - Paraesthesia [Recovered/Resolved]
  - Asthenia [Recovered/Resolved]
  - Ear discomfort [Not Recovered/Not Resolved]
  - Condition aggravated [Recovered/Resolved]
  - Hypokinesia [Recovered/Resolved]
  - Dysarthria [Recovered/Resolved]
  - Ear pain [Not Recovered/Not Resolved]

NARRATIVE: CASE EVENT DATE: 2020
